FAERS Safety Report 19292012 (Version 1)
Quarter: 2021Q2

REPORT INFORMATION
  Report Type: Other
  Country: HR (occurrence: HR)
  Receive Date: 20210524
  Receipt Date: 20210524
  Transmission Date: 20210717
  Serious: Yes (Other)
  Sender: FDA-Public Use
  Company Number: HR-CELLTRION INC.-2021HR006757

PATIENT

DRUGS (1)
  1. REMSIMA [Suspect]
     Active Substance: INFLIXIMAB
     Indication: COLITIS ULCERATIVE
     Dosage: 500 MG, EVERY 4 WEEKS
     Route: 042
     Dates: start: 20190612, end: 20200204

REACTIONS (4)
  - Drug ineffective [Unknown]
  - Off label use [Unknown]
  - Colitis ulcerative [Unknown]
  - Overdose [Unknown]

NARRATIVE: CASE EVENT DATE: 20190612
